FAERS Safety Report 10515606 (Version 1)
Quarter: 2014Q4

REPORT INFORMATION
  Report Type: Spontaneous
  Country: DE (occurrence: DE)
  Receive Date: 20141014
  Receipt Date: 20141014
  Transmission Date: 20150528
  Serious: No
  Sender: FDA-Public Use
  Company Number: DE-JNJFOC-20141001248

PATIENT

DRUGS (2)
  1. OROS HYDROMORPHONE [Suspect]
     Active Substance: HYDROMORPHONE
     Indication: PAIN
     Route: 048
  2. FENTANYL. [Suspect]
     Active Substance: FENTANYL
     Indication: PAIN
     Route: 062

REACTIONS (4)
  - Drug effect decreased [Unknown]
  - Quality of life decreased [Unknown]
  - Drug ineffective [Unknown]
  - Treatment noncompliance [Unknown]
